FAERS Safety Report 7052421-9 (Version None)
Quarter: 2010Q4

REPORT INFORMATION
  Report Type: 
  Country: None (occurrence: None)
  Receive Date: 20101014
  Receipt Date: 20101006
  Transmission Date: 20110411
  Serious: Yes (Hospitalization)
  Sender: FDA-Public Use
  Company Number: TPA2010A05319

PATIENT
  Sex: Male

DRUGS (1)
  1. ULORIC [Suspect]
     Dosage: 80 MG, 1 IN 1 D, ORAL
     Route: 048

REACTIONS (1)
  - HEPATIC FAILURE [None]
